FAERS Safety Report 11628013 (Version 1)
Quarter: 2015Q4

REPORT INFORMATION
  Report Type: Spontaneous
  Country: US (occurrence: None)
  Receive Date: 20151013
  Receipt Date: 20151013
  Transmission Date: 20160304
  Serious: Yes (Other)
  Sender: FDA-Public Use
  Company Number: None

PATIENT
  Age: 64 Year
  Sex: Male

DRUGS (1)
  1. XTANDI [Suspect]
     Active Substance: ENZALUTAMIDE

REACTIONS (5)
  - Pain [None]
  - Neck pain [None]
  - Musculoskeletal stiffness [None]
  - Ear discomfort [None]
  - Cough [None]

NARRATIVE: CASE EVENT DATE: 20151006
